FAERS Safety Report 9717756 (Version 1)
Quarter: 2013Q4

REPORT INFORMATION
  Report Type: Spontaneous
  Country: US (occurrence: US)
  Receive Date: 20131127
  Receipt Date: 20131127
  Transmission Date: 20140711
  Serious: Yes (Other)
  Sender: FDA-Public Use
  Company Number: US-GLAXOSMITHKLINE-A1051075A

PATIENT
  Age: 84 Year
  Sex: Female

DRUGS (3)
  1. INFLUENZA VACCINE UNSPECIFIED 2013-2014 SEASON [Suspect]
     Indication: PROPHYLAXIS
     Route: 065
     Dates: start: 201309, end: 201309
  2. ADVAIR [Suspect]
     Indication: CHRONIC OBSTRUCTIVE PULMONARY DISEASE
     Route: 065
  3. PNEUMONIA VACCINE (NON-GSK) [Suspect]
     Indication: PROPHYLAXIS
     Route: 065
     Dates: start: 201309, end: 201309

REACTIONS (3)
  - Pneumonia [Not Recovered/Not Resolved]
  - Cough [Not Recovered/Not Resolved]
  - Off label use [Unknown]
